FAERS Safety Report 24442234 (Version 2)
Quarter: 2024Q4

REPORT INFORMATION
  Report Type: Report from Study
  Country: US (occurrence: US)
  Receive Date: 20241016
  Receipt Date: 20241017
  Transmission Date: 20250114
  Serious: No
  Sender: ROCHE
  Company Number: US-ROCHE-3535899

PATIENT
  Sex: Male

DRUGS (2)
  1. HEMLIBRA [Suspect]
     Active Substance: EMICIZUMAB-KXWH
     Indication: Factor VIII deficiency
     Dosage: 3MG/KG EVERY 7 DAYS X 4 LOADING DOSES. 45 MG (USE 0.3ML FROM 1 VIAL OF 30MG/0.4ML)
     Route: 058
     Dates: start: 20240325
  2. HEMLIBRA [Suspect]
     Active Substance: EMICIZUMAB-KXWH
     Dosage: FOR MAINTENANCE DOSING
     Route: 058
     Dates: start: 20240325

REACTIONS (2)
  - Product prescribing error [Unknown]
  - No adverse event [Unknown]
